FAERS Safety Report 6705082-X (Version None)
Quarter: 2010Q2

REPORT INFORMATION
  Report Type: 
  Country: None (occurrence: None)
  Receive Date: 20100430
  Receipt Date: 20100301
  Transmission Date: 20101027
  Serious: Yes (Life-Threatening)
  Sender: FDA-Public Use
  Company Number: US-ASTRAZENECA-2009SE20055

PATIENT
  Age: 20699 Day
  Sex: Female
  Weight: 55.3 kg

DRUGS (2)
  1. NEXIUM [Suspect]
     Route: 048
  2. RANITIDINE [Concomitant]

REACTIONS (1)
  - DIARRHOEA [None]
